FAERS Safety Report 7598453-3 (Version None)
Quarter: 2011Q3

REPORT INFORMATION
  Report Type: 
  Country: None (occurrence: None)
  Receive Date: 20110708
  Receipt Date: 20110627
  Transmission Date: 20111222
  Serious: Yes (Disabling)
  Sender: FDA-Public Use
  Company Number: US-MERCK-1106USA03773

PATIENT
  Age: 64 Year
  Sex: Male

DRUGS (2)
  1. ZETIA [Suspect]
     Indication: CARDIAC DISORDER
     Route: 048
     Dates: start: 20060601, end: 20080101
  2. ZOCOR [Suspect]
     Indication: CARDIAC DISORDER
     Route: 048
     Dates: start: 20060601, end: 20080101

REACTIONS (5)
  - MYALGIA [None]
  - MUSCLE INJURY [None]
  - GAIT DISTURBANCE [None]
  - SWELLING [None]
  - MUSCLE STRAIN [None]
